FAERS Safety Report 9516658 (Version 1)
Quarter: 2013Q1

REPORT INFORMATION
  Report Type: Spontaneous
  Country: US (occurrence: None)
  Receive Date: 20130305
  Receipt Date: 20130305
  Transmission Date: 20140127
  Serious: Yes (Other)
  Sender: FDA-Public Use
  Company Number: 163-21880-12011795

PATIENT
  Age: 61 Year
  Sex: Male
  Weight: 95.26 kg

DRUGS (4)
  1. REVLIMID [Suspect]
     Indication: PLASMA CELL MYELOMA
     Dosage: 25 MG, DAILY ON DAYS 1-21, PO
     Dates: start: 201112, end: 201201
  2. COUMADIN(WARFARIN SODIUM)(UNKNOWN) [Concomitant]
  3. VELCADE(BORTEZOMIB)(UNKNOWN) [Concomitant]
  4. CYTOXAN(CYCLOPHOSPHAMIDE)(UNKNOWN) [Concomitant]

REACTIONS (2)
  - Hypersensitivity [None]
  - Rash generalised [None]
